FAERS Safety Report 24442890 (Version 1)
Quarter: 2024Q4

REPORT INFORMATION
  Report Type: Spontaneous
  Country: FR (occurrence: FR)
  Receive Date: 20241016
  Receipt Date: 20241016
  Transmission Date: 20250115
  Serious: Yes (Death, Hospitalization, Other)
  Sender: AUROBINDO
  Company Number: FR-AUROBINDO-AUR-APL-2024-049914

PATIENT
  Age: 61 Year

DRUGS (1)
  1. LAMOTRIGINE [Suspect]
     Active Substance: LAMOTRIGINE
     Indication: Depression
     Dosage: 100 MILLIGRAM, DAILY
     Route: 065

REACTIONS (2)
  - Toxic epidermal necrolysis [Fatal]
  - Product prescribing issue [Unknown]
